FAERS Safety Report 8000188-X (Version None)
Quarter: 2011Q4

REPORT INFORMATION
  Report Type: 
  Country: None (occurrence: None)
  Receive Date: 20111222
  Receipt Date: 20111212
  Transmission Date: 20120403
  Serious: Yes (Other)
  Sender: FDA-Public Use
  Company Number: US-ELI_LILLY_AND_COMPANY-US201112004646

PATIENT
  Age: 45 Year
  Sex: Female

DRUGS (9)
  1. PLAQUENIL [Concomitant]
     Indication: SYSTEMIC LUPUS ERYTHEMATOSUS
  2. PREDNISONE TAB [Concomitant]
     Indication: SYSTEMIC LUPUS ERYTHEMATOSUS
  3. RITALIN [Concomitant]
     Indication: NARCOLEPSY
  4. PEPCID [Concomitant]
  5. ABILIFY [Concomitant]
     Indication: DEPRESSION
  6. BENTYL [Concomitant]
  7. CYMBALTA [Suspect]
     Indication: DEPRESSION
     Dosage: 90 MG, QD
     Dates: start: 20040101
  8. NUVIGIL [Concomitant]
  9. DICYCLOMINE [Concomitant]

REACTIONS (2)
  - GASTRIC BANDING [None]
  - VOMITING [None]
